FAERS Safety Report 17465749 (Version 1)
Quarter: 2020Q1

REPORT INFORMATION
  Report Type: Spontaneous
  Country: US (occurrence: US)
  Receive Date: 20200227
  Receipt Date: 20200227
  Transmission Date: 20200409
  Serious: No
  Sender: FDA-Public Use
  Company Number: US-ASTRAZENECA-2020SE16749

PATIENT
  Sex: Female

DRUGS (1)
  1. FASENRA [Suspect]
     Active Substance: BENRALIZUMAB
     Indication: ASTHMA
     Dosage: FIRST 3 DOSES EVERY 4 WEEKS AND THE FOURTH DOSE 8 WEEKS AFTER.
     Route: 058
     Dates: start: 2019

REACTIONS (2)
  - Eosinophil count increased [Unknown]
  - Drug ineffective [Unknown]
